FAERS Safety Report 7071529-5 (Version None)
Quarter: 2010Q4

REPORT INFORMATION
  Report Type: 
  Country: None (occurrence: None)
  Receive Date: 20101029
  Receipt Date: 20090917
  Transmission Date: 20110411
  Serious: No
  Sender: FDA-Public Use
  Company Number: A0807870A

PATIENT
  Age: 63 Year
  Sex: Female

DRUGS (2)
  1. ADVAIR DISKUS 100/50 [Suspect]
     Indication: ASTHMA
     Dosage: 1PUFF TWICE PER DAY
     Route: 055
     Dates: start: 20060101
  2. PROVENTIL [Concomitant]

REACTIONS (1)
  - OROPHARYNGITIS FUNGAL [None]
